FAERS Safety Report 9645591 (Version 2)
Quarter: 2013Q4

REPORT INFORMATION
  Report Type: Spontaneous
  Country: US (occurrence: US)
  Receive Date: 20131025
  Receipt Date: 20131107
  Transmission Date: 20140711
  Serious: Yes (Other)
  Sender: FDA-Public Use
  Company Number: US-009507513-1310USA010735

PATIENT
  Age: 82 Year
  Sex: Female

DRUGS (1)
  1. COPPERTONE WATER BABIES LOTION SPF-70+ [Suspect]
     Indication: PROPHYLAXIS
     Dosage: UNK
     Route: 061

REACTIONS (2)
  - Recurrent cancer [Unknown]
  - Neoplasm [Unknown]
